FAERS Safety Report 5532798-3 (Version None)
Quarter: 2007Q4

REPORT INFORMATION
  Report Type: 
  Country: None (occurrence: None)
  Receive Date: 20071204
  Receipt Date: 20071123
  Transmission Date: 20080405
  Serious: Yes (Hospitalization)
  Sender: FDA-Public Use
  Company Number: FR-BRISTOL-MYERS SQUIBB COMPANY-14000764

PATIENT
  Age: 57 Year
  Sex: Female

DRUGS (11)
  1. CYCLOPHOSPHAMIDE [Suspect]
     Indication: FASCIITIS
     Route: 042
     Dates: start: 20071004, end: 20071004
  2. UROMITEXAN [Suspect]
     Indication: FASCIITIS
     Dosage: ALSO ADMINISTERED 400 MG, IV, ONCE ON 04-OCT-07
     Route: 048
     Dates: start: 20071004, end: 20071004
  3. KYTRIL [Suspect]
     Indication: FASCIITIS
     Dosage: 1 DOSAGE FORM = 1 AMPULE
     Route: 042
     Dates: start: 20071004, end: 20071004
  4. SOLU-MEDROL [Suspect]
     Indication: FASCIITIS
     Route: 042
     Dates: start: 20071003, end: 20071004
  5. RIVOTRIL [Concomitant]
     Dosage: 1 DOSAGE FORM = 1 DROP
  6. ACETAMINOPHEN AND TRAMADOL HCL [Concomitant]
     Dosage: 1 DOSAGE FORM = 1TABLET
  7. PREDNISONE TAB [Concomitant]
  8. DIFFU-K [Concomitant]
  9. FOSAMAX [Concomitant]
     Dosage: 1 DOSAGE FORM = 1 TABLET
  10. CACIT D3 [Concomitant]
  11. NEURONTIN [Concomitant]
     Dates: end: 20070926

REACTIONS (3)
  - BRADYCARDIA [None]
  - ELECTROCARDIOGRAM QT PROLONGED [None]
  - TRANSAMINASES INCREASED [None]
